FAERS Safety Report 12491483 (Version 2)
Quarter: 2016Q3

REPORT INFORMATION
  Report Type: Spontaneous
  Country: DE (occurrence: DE)
  Receive Date: 20160623
  Receipt Date: 20160701
  Transmission Date: 20161109
  Serious: Yes (Other)
  Sender: FDA-Public Use
  Company Number: DE-009507513-1606DEU001749

PATIENT
  Age: 47 Year
  Sex: Male
  Weight: 78 kg

DRUGS (2)
  1. EBASTINE [Concomitant]
     Active Substance: EBASTINE
     Dosage: UNK
     Dates: start: 20160301
  2. TIMOTHY GRASS POLLEN ALLERGEN EXTRACT [Suspect]
     Active Substance: PHLEUM PRATENSE POLLEN
     Dosage: STRENGTH 75000 SQ-T, DOSE: 75000 SQ-T, UNKNOWN
     Route: 060
     Dates: start: 20160506, end: 20160517

REACTIONS (2)
  - Mood swings [Recovered/Resolved]
  - Tachycardia [Recovered/Resolved]

NARRATIVE: CASE EVENT DATE: 20160506
